FAERS Safety Report 7061210-0 (Version None)
Quarter: 2010Q4

REPORT INFORMATION
  Report Type: 
  Country: None (occurrence: None)
  Receive Date: 20101026
  Receipt Date: 20101014
  Transmission Date: 20110411
  Serious: No
  Sender: FDA-Public Use
  Company Number: US-PFIZER INC-2010131081

PATIENT

DRUGS (1)
  1. GEODON [Suspect]
     Dosage: 160 MG, UNK

REACTIONS (1)
  - ACNE [None]
